FAERS Safety Report 21991379 (Version 1)
Quarter: 2023Q1

REPORT INFORMATION
  Report Type: Spontaneous
  Country: US (occurrence: US)
  Receive Date: 20230214
  Receipt Date: 20230214
  Transmission Date: 20230418
  Serious: No
  Sender: FDA-Public Use
  Company Number: US-PFIZER INC-PV202300001288

PATIENT
  Age: 46 Year
  Sex: Female
  Weight: 42.177 kg

DRUGS (3)
  1. NURTEC ODT [Suspect]
     Active Substance: RIMEGEPANT SULFATE
     Indication: Migraine prophylaxis
     Dosage: 75 MG, ALTERNATE DAY
     Route: 048
  2. NURTEC ODT [Suspect]
     Active Substance: RIMEGEPANT SULFATE
     Dosage: 75 MG, SINGLE
     Dates: start: 20230101, end: 20230101
  3. NURTEC ODT [Suspect]
     Active Substance: RIMEGEPANT SULFATE
     Dosage: 75 MG
     Dates: start: 20230102

REACTIONS (3)
  - Therapeutic product effect incomplete [Recovering/Resolving]
  - Inappropriate schedule of product administration [Recovering/Resolving]
  - Ophthalmic migraine [Recovering/Resolving]

NARRATIVE: CASE EVENT DATE: 20230102
